FAERS Safety Report 6965932-9 (Version None)
Quarter: 2010Q3

REPORT INFORMATION
  Report Type: 
  Country: None (occurrence: None)
  Receive Date: 20100903
  Receipt Date: 20100826
  Transmission Date: 20110219
  Serious: Yes (Other)
  Sender: FDA-Public Use
  Company Number: AU-AMGEN-QUU424466

PATIENT
  Sex: Female
  Weight: 46 kg

DRUGS (3)
  1. NPLATE [Suspect]
     Indication: IDIOPATHIC THROMBOCYTOPENIC PURPURA
     Route: 058
     Dates: start: 20100515
  2. MYCOPHENOLATE MOFETIL [Concomitant]
     Dates: start: 20100324
  3. DAPSONE [Concomitant]
     Dates: start: 20100316

REACTIONS (6)
  - FACIAL PARESIS [None]
  - FALL [None]
  - MUSCULAR WEAKNESS [None]
  - MYOPATHY [None]
  - NEUROPATHY PERIPHERAL [None]
  - PAIN IN EXTREMITY [None]
